FAERS Safety Report 9370952 (Version 2)
Quarter: 2013Q3

REPORT INFORMATION
  Report Type: Spontaneous
  Country: US (occurrence: US)
  Receive Date: 20130627
  Receipt Date: 20130808
  Transmission Date: 20140515
  Serious: Yes (Other)
  Sender: FDA-Public Use
  Company Number: US-AMGEN-USASP2013044682

PATIENT
  Age: 64 Year
  Sex: Male
  Weight: 94.78 kg

DRUGS (12)
  1. ENBREL [Suspect]
     Indication: PRODUCT USED FOR UNKNOWN INDICATION
     Dosage: 50 MG, WEEKLY
     Route: 058
     Dates: start: 200804
  2. AMLODIPINE [Concomitant]
     Dosage: 2.5 MG, UNK
  3. SIMVASTATIN [Concomitant]
     Dosage: 5 MG, UNK
  4. PLAVIX [Concomitant]
     Dosage: 75 MG, UNK
  5. METOPROLOL [Concomitant]
     Dosage: 25 MG, UNK ER
  6. PLAQUENIL                          /00072602/ [Concomitant]
     Dosage: 200 MG, UNK
  7. VITAMIN C                          /00008001/ [Concomitant]
     Dosage: 500 MG, UNK
  8. CALCIUM CITRATE [Concomitant]
     Dosage: 950 MG, UNK
  9. ASPIRIN [Concomitant]
     Dosage: 81 MG, UNK
  10. CO Q 10                            /00517201/ [Concomitant]
     Dosage: 10 MG, UNK
  11. MELOXICAM [Concomitant]
     Dosage: UNK
  12. FLONASE [Concomitant]
     Dosage: SPRAY 0.05 %, UNK

REACTIONS (4)
  - Meningitis [Recovered/Resolved]
  - Mastoiditis [Unknown]
  - Therapeutic response decreased [Unknown]
  - Ear infection [Unknown]
